FAERS Safety Report 9234898 (Version 1)
Quarter: 2013Q2

REPORT INFORMATION
  Report Type: Spontaneous
  Country: FR (occurrence: FR)
  Receive Date: 20130416
  Receipt Date: 20130416
  Transmission Date: 20140414
  Serious: Yes (Hospitalization)
  Sender: FDA-Public Use
  Company Number: FR-PFIZER INC-2013073065

PATIENT
  Age: 89 Year
  Sex: Female

DRUGS (10)
  1. TRIATEC [Suspect]
     Indication: HYPERTENSION
     Dosage: 5 MG, DAILY
     Route: 048
     Dates: start: 20121206, end: 20121227
  2. CACIT D3 [Concomitant]
     Dosage: UNK
     Dates: start: 20121206
  3. DEROXAT [Concomitant]
     Dosage: UNK
     Dates: start: 20121206
  4. EBIXA [Concomitant]
     Dosage: UNK
     Dates: start: 20121206
  5. LEXOMIL [Concomitant]
     Dosage: UNK
     Dates: start: 20121206
  6. TRANSIPEG [Concomitant]
     Dosage: UNK
     Dates: start: 20121206
  7. ZANIDIP [Concomitant]
     Dosage: UNK
     Dates: start: 20121206
  8. LEVEMIR [Concomitant]
     Dosage: UNK
     Dates: start: 20121217
  9. FUCITHALMIC [Concomitant]
  10. ROCEPHINE [Concomitant]
     Dosage: UNK
     Dates: start: 201212

REACTIONS (2)
  - Bronchospasm [Recovered/Resolved]
  - Cough [Recovered/Resolved]
